FAERS Safety Report 24577685 (Version 2)
Quarter: 2024Q4

REPORT INFORMATION
  Report Type: Spontaneous
  Country: US (occurrence: US)
  Receive Date: 20241104
  Receipt Date: 20241206
  Transmission Date: 20250115
  Serious: No
  Sender: CALLIDITAS THERAPEUTICS AB
  Company Number: US-Calliditas-2024CAL02418

PATIENT
  Age: 62 Year
  Sex: Female

DRUGS (2)
  1. TARPEYO [Suspect]
     Active Substance: BUDESONIDE
     Indication: IgA nephropathy
     Route: 048
     Dates: start: 202401
  2. METOPROLOL [Concomitant]
     Active Substance: METOPROLOL

REACTIONS (9)
  - Heart rate increased [Not Recovered/Not Resolved]
  - Weight increased [Not Recovered/Not Resolved]
  - Abdominal distension [Not Recovered/Not Resolved]
  - Swelling face [Not Recovered/Not Resolved]
  - Cardiac discomfort [Unknown]
  - Blood pressure increased [Unknown]
  - Headache [Unknown]
  - Abdominal pain upper [Unknown]
  - Gout [Unknown]

NARRATIVE: CASE EVENT DATE: 20241030
